FAERS Safety Report 21054736 (Version 1)
Quarter: 2022Q3

REPORT INFORMATION
  Report Type: Spontaneous
  Country: TR (occurrence: None)
  Receive Date: 20220707
  Receipt Date: 20220707
  Transmission Date: 20221027
  Serious: Yes (Other)
  Sender: FDA-Public Use
  Company Number: TR-Merck Healthcare KGaA-9333268

PATIENT
  Age: 30 Year
  Sex: Male
  Weight: 76 kg

DRUGS (4)
  1. GONAL-F [Suspect]
     Active Substance: FOLLITROPIN
     Indication: Azoospermia
     Dosage: GONAL-F 450 IU/0.75 ML (33 MICROGRAM/0.75 ML)
     Route: 058
     Dates: start: 20211021
  2. GONAL-F [Suspect]
     Active Substance: FOLLITROPIN
     Indication: In vitro fertilisation
  3. CHORIOGONADOTROPIN ALFA [Suspect]
     Active Substance: CHORIOGONADOTROPIN ALFA
     Indication: Azoospermia
     Dosage: OVITRELLE 250 MCG/0.5 ML
     Route: 058
     Dates: start: 20211021
  4. CHORIOGONADOTROPIN ALFA [Suspect]
     Active Substance: CHORIOGONADOTROPIN ALFA
     Indication: In vitro fertilisation

REACTIONS (1)
  - Arrhythmia [Not Recovered/Not Resolved]

NARRATIVE: CASE EVENT DATE: 20211021
